FAERS Safety Report 19470817 (Version 1)
Quarter: 2021Q2

REPORT INFORMATION
  Report Type: Report from Study
  Country: US (occurrence: US)
  Receive Date: 20210628
  Receipt Date: 20210628
  Transmission Date: 20210717
  Serious: Yes (Other)
  Sender: FDA-Public Use
  Company Number: US-PFIZER INC-2021716193

PATIENT
  Age: 61 Year
  Sex: Male

DRUGS (2)
  1. TOVIAZ [Suspect]
     Active Substance: FESOTERODINE FUMARATE
     Dosage: UNK
  2. MIRABEGRON [Suspect]
     Active Substance: MIRABEGRON
     Dosage: 25 MG, DAILY
     Route: 048

REACTIONS (2)
  - Urinary retention [Unknown]
  - Nocturia [Unknown]
